FAERS Safety Report 6743753-X (Version None)
Quarter: 2010Q2

REPORT INFORMATION
  Report Type: 
  Country: None (occurrence: None)
  Receive Date: 20100527
  Receipt Date: 20100518
  Transmission Date: 20101027
  Serious: Yes (Hospitalization)
  Sender: FDA-Public Use
  Company Number: IN-SANOFI-AVENTIS-2010SA027181

PATIENT
  Age: 41 Year
  Sex: Male

DRUGS (6)
  1. DOCETAXEL [Suspect]
     Indication: PROSTATE CANCER
     Route: 041
     Dates: start: 20100304, end: 20100304
  2. DOCETAXEL [Suspect]
     Route: 041
     Dates: start: 20100325, end: 20100325
  3. BLINDED THERAPY [Suspect]
     Indication: PROSTATE CANCER
     Route: 048
     Dates: start: 20100304, end: 20100416
  4. PREDNISONE TAB [Suspect]
     Indication: PROSTATE CANCER
     Route: 048
     Dates: start: 20100325
  5. DEXAMETHASONE [Suspect]
     Indication: PREMEDICATION
  6. ZOLEDRONIC ACID [Concomitant]
     Dates: end: 20100402

REACTIONS (1)
  - HYPOCALCAEMIA [None]
